FAERS Safety Report 9190820 (Version 2)
Quarter: 2013Q2

REPORT INFORMATION
  Report Type: Spontaneous
  Country: US (occurrence: US)
  Receive Date: 20130326
  Receipt Date: 20130422
  Transmission Date: 20140414
  Serious: Yes (Other)
  Sender: FDA-Public Use
  Company Number: US-GLAXOSMITHKLINE-A0984471A

PATIENT
  Age: 69 Year
  Sex: Male

DRUGS (2)
  1. FLOLAN [Suspect]
     Indication: PRODUCT USED FOR UNKNOWN INDICATION
     Dosage: 18NGKM CONTINUOUS
     Route: 042
     Dates: start: 20090921
  2. COUMADIN [Concomitant]

REACTIONS (4)
  - Pneumonia [Unknown]
  - Injection site inflammation [Unknown]
  - Catheter site discharge [Unknown]
  - Cough [Unknown]
